FAERS Safety Report 9304642 (Version 2)
Quarter: 2013Q3

REPORT INFORMATION
  Report Type: Spontaneous
  Country: IT (occurrence: IT)
  Receive Date: 20130523
  Receipt Date: 20130703
  Transmission Date: 20140515
  Serious: Yes (Hospitalization)
  Sender: FDA-Public Use
  Company Number: IT-ROCHE-1225716

PATIENT
  Age: 76 Year
  Sex: Female
  Weight: 66 kg

DRUGS (6)
  1. COPEGUS [Suspect]
     Indication: HEPATITIS C
     Route: 048
     Dates: start: 20130322, end: 20130522
  2. COPEGUS [Suspect]
     Route: 048
     Dates: end: 20130522
  3. INCIVO [Suspect]
     Indication: HEPATITIS C
     Route: 048
     Dates: start: 20130322, end: 20130418
  4. PEGINTRON [Suspect]
     Indication: HEPATITIS C
     Route: 058
     Dates: start: 20130322, end: 20130522
  5. KARVEZIDE [Concomitant]
     Indication: HYPERTENSION
     Route: 048
  6. EUTIROX [Concomitant]
     Indication: HYPOTHYROIDISM
     Route: 048

REACTIONS (4)
  - Anaemia [Recovering/Resolving]
  - Rash generalised [Recovering/Resolving]
  - Asthenia [Recovering/Resolving]
  - Psychomotor skills impaired [Recovering/Resolving]
